FAERS Safety Report 9904550 (Version 3)
Quarter: 2014Q2

REPORT INFORMATION
  Report Type: Spontaneous
  Country: RU (occurrence: RU)
  Receive Date: 20140218
  Receipt Date: 20140430
  Transmission Date: 20141212
  Serious: Yes (Hospitalization)
  Sender: FDA-Public Use
  Company Number: RU-NOVOPROD-400382

PATIENT
  Age: 67 Year
  Sex: Female
  Weight: 67 kg

DRUGS (4)
  1. NOVORAPID FLEXPEN [Suspect]
     Indication: TYPE 2 DIABETES MELLITUS
     Dosage: UNK (31-32 U (USUALLY))
     Route: 058
     Dates: start: 2008
  2. NOVORAPID FLEXPEN [Suspect]
     Dosage: 36 U, QD
     Route: 058
     Dates: start: 20140129
  3. LEVEMIR FLEXPEN [Suspect]
     Indication: TYPE 2 DIABETES MELLITUS
     Dosage: 25 U, QD (12-0-13)
     Route: 058
     Dates: start: 2008
  4. FEMARA [Concomitant]
     Indication: BREAST NEOPLASM
     Dosage: 2.5 MG
     Route: 065
     Dates: start: 2012

REACTIONS (4)
  - Radiation pneumonitis [Recovered/Resolved]
  - Blood glucose increased [Not Recovered/Not Resolved]
  - Hyperglycaemia [Recovered/Resolved]
  - Drug ineffective [Unknown]
